FAERS Safety Report 17134145 (Version 1)
Quarter: 2019Q4

REPORT INFORMATION
  Report Type: Spontaneous
  Country: FR (occurrence: FR)
  Receive Date: 20191210
  Receipt Date: 20191210
  Transmission Date: 20200122
  Serious: Yes (Other)
  Sender: FDA-Public Use
  Company Number: FR-GLAXOSMITHKLINE-FR2019219990

PATIENT
  Age: 48 Year
  Sex: Male
  Weight: 85 kg

DRUGS (1)
  1. LAMICTAL [Suspect]
     Active Substance: LAMOTRIGINE
     Indication: DEPRESSION
     Dosage: 100 MG
     Route: 048
     Dates: start: 20170422, end: 20180301

REACTIONS (1)
  - Hypomania [Recovered/Resolved]

NARRATIVE: CASE EVENT DATE: 201706
